FAERS Safety Report 8890831 (Version 2)
Quarter: 2012Q4

REPORT INFORMATION
  Report Type: Report from Study
  Country: US (occurrence: US)
  Receive Date: 20121107
  Receipt Date: 20121112
  Transmission Date: 20130627
  Serious: Yes (Hospitalization)
  Sender: FDA-Public Use
  Company Number: US-CELGENEUS-163-21880-12102378

PATIENT
  Age: 47 Year
  Sex: Male
  Weight: 72.2 kg

DRUGS (4)
  1. REVLIMID [Suspect]
     Indication: MDS
     Dosage: 7.5 Milligram
     Route: 048
     Dates: start: 20120828
  2. REVLIMID [Suspect]
     Dosage: 7.5 Milligram
     Route: 048
     Dates: start: 20120926, end: 20121003
  3. ERYTHROPOIETIN [Suspect]
     Indication: MDS
     Dosage: 60,000 units
     Route: 058
     Dates: start: 20120828
  4. ERYTHROPOIETIN [Suspect]
     Dosage: 60,000 units
     Route: 058
     Dates: start: 20120925, end: 20121003

REACTIONS (6)
  - Febrile neutropenia [Recovered/Resolved]
  - Blood alkaline phosphatase increased [Unknown]
  - Alanine aminotransferase increased [Unknown]
  - Anaemia [Recovered/Resolved]
  - Dyspnoea [Recovered/Resolved]
  - Fatigue [Unknown]
